FAERS Safety Report 8383844-3 (Version None)
Quarter: 2012Q2

REPORT INFORMATION
  Report Type: 
  Country: None (occurrence: None)
  Receive Date: 20120524
  Receipt Date: 20120521
  Transmission Date: 20120825
  Serious: Yes (Death, Hospitalization)
  Sender: FDA-Public Use
  Company Number: FR-ROCHE-1055523

PATIENT
  Sex: Female
  Weight: 67 kg

DRUGS (7)
  1. CHLORAMBUCIL [Suspect]
     Indication: CHRONIC LYMPHOCYTIC LEUKAEMIA
     Dosage: LAST DOSE PRIOR TO ENCEPHALOPATHY: 06/MAR/2012
     Route: 048
     Dates: start: 20111018, end: 20120306
  2. CHONDROSULF [Concomitant]
     Dates: start: 20000101
  3. MABTHERA [Suspect]
     Indication: CHRONIC LYMPHOCYTIC LEUKAEMIA
     Dosage: LAST DOSE PRIOR TO ENCEPHALOPATHY: 06/MAR/2012
     Route: 042
     Dates: start: 20111018, end: 20120306
  4. VOLTARENE (FRANCE) [Concomitant]
     Dates: start: 20000101
  5. ROCEPHIN [Suspect]
     Indication: LUNG DISORDER
  6. ALENDRONATE SODIUM [Concomitant]
     Dates: start: 20000101
  7. CELECTOL [Concomitant]
     Dates: start: 20000101

REACTIONS (6)
  - PNEUMONIA [None]
  - SUDDEN CARDIAC DEATH [None]
  - ENCEPHALOPATHY [None]
  - RENAL FAILURE [None]
  - NEUTROPHIL COUNT INCREASED [None]
  - CARDIAC ARREST [None]
